FAERS Safety Report 8214785-X (Version None)
Quarter: 2012Q1

REPORT INFORMATION
  Report Type: 
  Country: None (occurrence: None)
  Receive Date: 20120316
  Receipt Date: 20120306
  Transmission Date: 20120608
  Serious: Yes (Other)
  Sender: FDA-Public Use
  Company Number: DE-BRISTOL-MYERS SQUIBB COMPANY-16447054

PATIENT
  Age: 70 Year
  Sex: Male

DRUGS (1)
  1. IRBESARTAN [Suspect]

REACTIONS (1)
  - CONJUNCTIVAL HAEMORRHAGE [None]
